FAERS Safety Report 5279028-8 (Version None)
Quarter: 2007Q1

REPORT INFORMATION
  Report Type: 
  Country: None (occurrence: None)
  Receive Date: 20070328
  Receipt Date: 20070103
  Transmission Date: 20070707
  Serious: No
  Sender: FDA-Public Use
  Company Number: US-AMGEN-KDL205390

PATIENT
  Sex: Female

DRUGS (5)
  1. NEULASTA [Suspect]
     Indication: CHEMOTHERAPY
     Route: 065
     Dates: start: 20060801, end: 20061013
  2. CLARITIN-D [Concomitant]
     Route: 065
  3. HERCEPTIN [Concomitant]
     Route: 065
  4. TAXOTERE [Concomitant]
     Route: 065
     Dates: start: 20060801, end: 20061013
  5. CYTOXAN [Concomitant]
     Route: 065
     Dates: start: 20060801, end: 20061013

REACTIONS (1)
  - WHITE BLOOD CELL COUNT DECREASED [None]
